FAERS Safety Report 22224415 (Version 1)
Quarter: 2023Q2

REPORT INFORMATION
  Report Type: Report from Study
  Country: CA (occurrence: CA)
  Receive Date: 20230418
  Receipt Date: 20230418
  Transmission Date: 20230722
  Serious: Yes (Other)
  Sender: FDA-Public Use
  Company Number: CA-ABBVIE-4731924

PATIENT
  Sex: Male

DRUGS (1)
  1. RINVOQ [Suspect]
     Active Substance: UPADACITINIB
     Indication: Crohn^s disease
     Dosage: EVENT ONSET DATE FOR ILEOSTOMY AND ONE OR TWO OVAL SHAPED PILLS IN  STOOL: APR 2023
     Route: 048
     Dates: start: 20230410

REACTIONS (2)
  - Ileostomy [Unknown]
  - Product residue present [Unknown]
